FAERS Safety Report 5839908-9 (Version None)
Quarter: 2008Q3

REPORT INFORMATION
  Report Type: 
  Country: None (occurrence: None)
  Receive Date: 20080811
  Receipt Date: 20080709
  Transmission Date: 20090109
  Serious: No
  Sender: FDA-Public Use
  Company Number: US-BAYER-200828564NA

PATIENT
  Sex: Female

DRUGS (1)
  1. CIPRO [Suspect]
     Indication: DRUG USE FOR UNKNOWN INDICATION

REACTIONS (6)
  - JOINT INJURY [None]
  - JOINT SWELLING [None]
  - LIMB INJURY [None]
  - SWELLING [None]
  - TENDERNESS [None]
  - TENDON INJURY [None]
